FAERS Safety Report 10456827 (Version 1)
Quarter: 2014Q3

REPORT INFORMATION
  Report Type: Spontaneous
  Country: US (occurrence: None)
  Receive Date: 20140828
  Receipt Date: 20140828
  Transmission Date: 20150326
  Serious: Yes (Other)
  Sender: FDA-Public Use
  Company Number: PHEH2014US001133

PATIENT
  Age: 85 Year
  Sex: Male

DRUGS (10)
  1. SANDOSTATIN LAR DEPOT [Suspect]
     Active Substance: OCTREOTIDE ACETATE
     Indication: HEPATIC NEOPLASM
  2. GABAPENTIN. [Concomitant]
     Active Substance: GABAPENTIN
  3. PRILOSEC (OMEPRAZOLE) [Concomitant]
     Active Substance: OMEPRAZOLE MAGNESIUM
  4. SANDOSTATIN LAR DEPOT [Suspect]
     Active Substance: OCTREOTIDE ACETATE
     Indication: CARCINOID TUMOUR
  5. TRAMADOL [Concomitant]
     Active Substance: TRAMADOL
  6. MONOPRIL (FOSINOPRIL SODIUM) [Concomitant]
  7. HYDROXYCHLOROQUINE [Concomitant]
     Active Substance: HYDROXYCHLOROQUINE
  8. PROLIA [Concomitant]
     Active Substance: DENOSUMAB
  9. BETHANECHOL [Concomitant]
     Active Substance: BETHANECHOL
  10. CELEBREX [Concomitant]
     Active Substance: CELECOXIB

REACTIONS (4)
  - Urine output increased [None]
  - Urinary retention [None]
  - Metastasis [None]
  - Neuropathy peripheral [None]
